FAERS Safety Report 21823889 (Version 2)
Quarter: 2023Q1

REPORT INFORMATION
  Report Type: Spontaneous
  Country: US (occurrence: US)
  Receive Date: 20230105
  Receipt Date: 20230210
  Transmission Date: 20230417
  Serious: Yes (Other)
  Sender: FDA-Public Use
  Company Number: US-ORGANON-O2301USA000064

PATIENT
  Age: 28 Year
  Sex: Female
  Weight: 61.224 kg

DRUGS (2)
  1. NEXPLANON [Suspect]
     Active Substance: ETONOGESTREL
     Indication: Contraception
     Dosage: 1 IMPLANT
     Route: 059
     Dates: start: 201912, end: 20221214
  2. NEXPLANON [Suspect]
     Active Substance: ETONOGESTREL
     Indication: Contraception
     Dosage: 1 68 MG IMPLANT IN LEFT ARM
     Route: 059
     Dates: start: 20221214

REACTIONS (3)
  - Implant site pain [Recovering/Resolving]
  - Peripheral swelling [Recovered/Resolved]
  - Implant site bruising [Recovering/Resolving]

NARRATIVE: CASE EVENT DATE: 20221201
